FAERS Safety Report 15269337 (Version 1)
Quarter: 2018Q3

REPORT INFORMATION
  Report Type: Spontaneous
  Country: US (occurrence: US)
  Receive Date: 20180726
  Receipt Date: 20180726
  Transmission Date: 20181010
  Serious: Yes (Other)
  Sender: FDA-Public Use
  Company Number: None

PATIENT
  Age: 50 Year
  Sex: Female
  Weight: 73 kg

DRUGS (1)
  1. SODIUM FERRIC GLUCONATE [Suspect]
     Active Substance: SODIUM FERRIC GLUCONATE COMPLEX
     Indication: IRON DEFICIENCY
     Route: 041

REACTIONS (6)
  - Pain in extremity [None]
  - Tongue discomfort [None]
  - Condition aggravated [None]
  - Product substitution issue [None]
  - Musculoskeletal stiffness [None]
  - Dyspnoea [None]

NARRATIVE: CASE EVENT DATE: 20180726
